FAERS Safety Report 10191861 (Version 1)
Quarter: 2014Q2

REPORT INFORMATION
  Report Type: Spontaneous
  Country: US (occurrence: US)
  Receive Date: 20140523
  Receipt Date: 20140523
  Transmission Date: 20141212
  Serious: No
  Sender: FDA-Public Use
  Company Number: US-GLAXOSMITHKLINE-A1059088A

PATIENT
  Age: 79 Year
  Sex: Female

DRUGS (2)
  1. FLOLAN [Suspect]
     Indication: PULMONARY ARTERIAL HYPERTENSION
     Dosage: 31.3NGKM CONTINUOUS
     Route: 042
     Dates: start: 20000330
  2. REVATIO [Concomitant]

REACTIONS (2)
  - Vomiting [Unknown]
  - Diarrhoea [Unknown]
